FAERS Safety Report 4510013-7 (Version None)
Quarter: 2004Q4

REPORT INFORMATION
  Report Type: 
  Country: None (occurrence: None)
  Receive Date: 20041119
  Receipt Date: 20041105
  Transmission Date: 20050328
  Serious: Yes (Disabling)
  Sender: FDA-Public Use
  Company Number: 2004AP05719

PATIENT
  Sex: Male

DRUGS (9)
  1. IRESSA [Suspect]
     Indication: LUNG NEOPLASM MALIGNANT
     Dosage: 250 MG DAILY PO
     Route: 048
  2. RADIOTHERAPY [Suspect]
  3. MOBIC [Concomitant]
  4. CYTOTEC [Concomitant]
  5. NAUZELIN [Concomitant]
  6. MAGNESIUM OXIDE [Concomitant]
  7. FLUITRAN [Concomitant]
  8. BONALON [Concomitant]
  9. MS CONTIN [Concomitant]

REACTIONS (1)
  - ACUTE PROMYELOCYTIC LEUKAEMIA [None]
